FAERS Safety Report 16437850 (Version 1)
Quarter: 2019Q2

REPORT INFORMATION
  Report Type: Spontaneous
  Country: US (occurrence: US)
  Receive Date: 20190616
  Receipt Date: 20190616
  Transmission Date: 20190711
  Serious: No
  Sender: FDA-Public Use
  Company Number: US-009507513-1906USA000561

PATIENT
  Sex: Male

DRUGS (2)
  1. METOPROLOL. [Interacting]
     Active Substance: METOPROLOL
     Dosage: DOSE: 5 MG OR SOMETHING
  2. BELSOMRA [Suspect]
     Active Substance: SUVOREXANT
     Indication: INSOMNIA
     Dosage: UNK UNK, ONCE
     Route: 048
     Dates: start: 20190530, end: 20190530

REACTIONS (2)
  - Drug interaction [Unknown]
  - Panic attack [Recovered/Resolved]

NARRATIVE: CASE EVENT DATE: 20190530
